FAERS Safety Report 6788473-0 (Version None)
Quarter: 2010Q2

REPORT INFORMATION
  Report Type: 
  Country: None (occurrence: None)
  Receive Date: 20100623
  Receipt Date: 20080331
  Transmission Date: 20101027
  Serious: No
  Sender: FDA-Public Use
  Company Number: US-PFIZER INC-2008029008

PATIENT
  Sex: Male
  Weight: 99.79 kg

DRUGS (2)
  1. GEODON [Suspect]
     Indication: BIPOLAR DISORDER
     Dates: start: 20050101, end: 20080301
  2. GEODON [Suspect]
     Indication: SCHIZOAFFECTIVE DISORDER

REACTIONS (5)
  - ASTHENIA [None]
  - GAIT DISTURBANCE [None]
  - HEPATIC ENZYME INCREASED [None]
  - NAUSEA [None]
  - WEIGHT DECREASED [None]
